FAERS Safety Report 12143325 (Version 4)
Quarter: 2022Q1

REPORT INFORMATION
  Report Type: Report from Study
  Country: US (occurrence: US)
  Receive Date: 20160304
  Receipt Date: 20220112
  Transmission Date: 20220424
  Serious: Yes (Death, Life-Threatening, Hospitalization)
  Sender: FDA-Public Use
  Company Number: US-BIOGEN-2015BI00161439

PATIENT
  Age: 50 Year
  Sex: Female
  Weight: 49.486 kg

DRUGS (9)
  1. PLEGRIDY [Suspect]
     Active Substance: PEGINTERFERON BETA-1A
     Indication: Multiple sclerosis
     Route: 058
     Dates: start: 20140904
  2. PLEGRIDY [Suspect]
     Active Substance: PEGINTERFERON BETA-1A
     Route: 058
     Dates: start: 20140917
  3. PLEGRIDY [Suspect]
     Active Substance: PEGINTERFERON BETA-1A
     Route: 058
     Dates: start: 20140930
  4. BENZTROPINE [Concomitant]
     Active Substance: BENZTROPINE
     Indication: Hypomania
     Route: 048
     Dates: start: 20071017
  5. HALOPERIDOL [Concomitant]
     Active Substance: HALOPERIDOL
     Indication: Hypomania
     Route: 048
     Dates: start: 20071017
  6. HALOPERIDOL [Concomitant]
     Active Substance: HALOPERIDOL
     Route: 048
  7. ALEVE [Concomitant]
     Active Substance: NAPROXEN SODIUM
     Indication: Influenza like illness
     Route: 048
     Dates: start: 20140804
  8. ALEVE [Concomitant]
     Active Substance: NAPROXEN SODIUM
     Route: 048
  9. DOBUTAMINE [Concomitant]
     Active Substance: DOBUTAMINE HYDROCHLORIDE
     Route: 065

REACTIONS (3)
  - Acute myocardial infarction [Fatal]
  - Respiratory failure [Fatal]
  - Coronary artery disease [Fatal]

NARRATIVE: CASE EVENT DATE: 20151212
